FAERS Safety Report 26068822 (Version 1)
Quarter: 2025Q4

REPORT INFORMATION
  Report Type: Spontaneous
  Country: EU (occurrence: EU)
  Receive Date: 20251120
  Receipt Date: 20251120
  Transmission Date: 20260118
  Serious: Yes (Other)
  Sender: NOVARTIS
  Company Number: EU-002147023-NVSC2025BE177332

PATIENT
  Age: 60 Year
  Sex: Female

DRUGS (7)
  1. LAPATINIB [Suspect]
     Active Substance: LAPATINIB
     Indication: Breast cancer
     Dosage: UNK
     Route: 065
  2. CAPECITABINE [Suspect]
     Active Substance: CAPECITABINE
     Indication: Breast cancer
     Dosage: UNK
     Route: 065
  3. PACLITAXEL [Concomitant]
     Active Substance: PACLITAXEL
     Indication: Breast cancer
     Dosage: UNK
     Route: 065
  4. PACLITAXEL [Concomitant]
     Active Substance: PACLITAXEL
     Indication: Neoadjuvant therapy
  5. CARBOPLATIN [Concomitant]
     Active Substance: CARBOPLATIN
     Indication: Breast cancer
     Dosage: UNK
     Route: 065
  6. CARBOPLATIN [Concomitant]
     Active Substance: CARBOPLATIN
     Indication: Adjuvant therapy
  7. Paclitaxel;Pertuzumab;Trastuzumab [Concomitant]
     Indication: Breast cancer
     Dosage: UNK
     Route: 065

REACTIONS (1)
  - Toxicity to various agents [Unknown]
